FAERS Safety Report 8103899-0 (Version None)
Quarter: 2012Q1

REPORT INFORMATION
  Report Type: 
  Country: None (occurrence: None)
  Receive Date: 20120201
  Receipt Date: 20120126
  Transmission Date: 20120608
  Serious: Yes (Hospitalization, Other)
  Sender: FDA-Public Use
  Company Number: JP-PFIZER INC-2012022130

PATIENT
  Age: 76 Year
  Sex: Female

DRUGS (12)
  1. LYRICA [Suspect]
     Dosage: 100 MG/DAY
     Route: 048
     Dates: start: 20120120
  2. LAC B [Concomitant]
     Dosage: UNK
  3. MICARDIS [Concomitant]
     Dosage: UNK
  4. FAMOTIDINE [Concomitant]
     Dosage: UNK
  5. LYRICA [Suspect]
     Indication: POST HERPETIC NEURALGIA
     Dosage: 25 MG, 2X/DAY
     Route: 048
     Dates: start: 20111213, end: 20120119
  6. LIPITOR [Concomitant]
     Dosage: 10 MG DAILY
     Route: 048
  7. PREDNISOLONE [Concomitant]
     Dosage: 1 MG DAILY
     Route: 048
  8. SELBEX [Concomitant]
     Dosage: UNK
  9. NITRODERM [Concomitant]
     Dosage: UNK
  10. NORVASC [Concomitant]
     Dosage: 5 MG DAILY
     Route: 048
  11. PREDNISOLONE [Concomitant]
     Dosage: 5 MG DIALY
     Route: 048
  12. ALLOPURINOL [Concomitant]
     Dosage: UNK

REACTIONS (4)
  - PULMONARY OEDEMA [None]
  - NASOPHARYNGITIS [None]
  - PRODUCTIVE COUGH [None]
  - CHEST DISCOMFORT [None]
